FAERS Safety Report 18566246 (Version 2)
Quarter: 2021Q1

REPORT INFORMATION
  Report Type: Spontaneous
  Country: US (occurrence: US)
  Receive Date: 20201201
  Receipt Date: 20210310
  Transmission Date: 20210419
  Serious: Yes (Death)
  Sender: FDA-Public Use
  Company Number: US-BAYER-2020-258058

PATIENT
  Age: 93 Year
  Sex: Male

DRUGS (1)
  1. STIVARGA [Suspect]
     Active Substance: REGORAFENIB
     Indication: COLON CANCER
     Dosage: UNK UNK, QD
     Route: 048
     Dates: start: 202005, end: 202012

REACTIONS (2)
  - Colon cancer [Fatal]
  - Aortic aneurysm [Fatal]
